FAERS Safety Report 24991853 (Version 3)
Quarter: 2025Q1

REPORT INFORMATION
  Report Type: Spontaneous
  Country: US (occurrence: US)
  Receive Date: 20250220
  Receipt Date: 20250312
  Transmission Date: 20250409
  Serious: Yes (Other)
  Sender: DAIICHI
  Company Number: US-DSJP-DS-2025-125439-US

PATIENT
  Sex: Male

DRUGS (2)
  1. TURALIO [Suspect]
     Active Substance: PEXIDARTINIB HYDROCHLORIDE
     Indication: Neoplasm
     Dosage: 250 MG, BID
     Route: 048
     Dates: start: 20250122
  2. TURALIO [Suspect]
     Active Substance: PEXIDARTINIB HYDROCHLORIDE
     Dosage: 125 MG, BID
     Route: 048
     Dates: start: 20250122

REACTIONS (11)
  - Pulmonary thrombosis [Recovered/Resolved]
  - Tumour pain [Recovered/Resolved]
  - Ill-defined disorder [Recovered/Resolved]
  - Mobility decreased [Recovered/Resolved]
  - Fatigue [Recovered/Resolved]
  - Constipation [Recovered/Resolved]
  - Head discomfort [Recovered/Resolved]
  - Decreased appetite [Recovered/Resolved]
  - Dementia [Recovered/Resolved]
  - Musculoskeletal stiffness [Recovered/Resolved]
  - Underdose [Recovered/Resolved]
